FAERS Safety Report 9576391 (Version 1)
Quarter: 2013Q4

REPORT INFORMATION
  Report Type: Spontaneous
  Country: US (occurrence: US)
  Receive Date: 20131001
  Receipt Date: 20131001
  Transmission Date: 20140711
  Serious: No
  Sender: FDA-Public Use
  Company Number: US-AMGEN-USASP2013002941

PATIENT
  Age: 60 Year
  Sex: Male
  Weight: 124.26 kg

DRUGS (9)
  1. ENBREL [Suspect]
     Indication: PSORIATIC ARTHROPATHY
     Dosage: 50 MG, QWK
     Route: 058
  2. VOLTAREN                           /00372301/ [Concomitant]
     Dosage: 1 %, UNK
  3. DIOVAN [Concomitant]
     Dosage: 160 MG, UNK
  4. SIMVASTATIN [Concomitant]
     Dosage: 10 MG, UNK
  5. FENOFIBRATE [Concomitant]
     Dosage: 134 MG, UNK
  6. METOPROLOL [Concomitant]
     Dosage: 100 MG ER
  7. PREVACID [Concomitant]
     Dosage: 30 MG DR
  8. ASPIRIN BUFFERED [Concomitant]
     Dosage: 325 MG, UNK
  9. PLAVIX [Concomitant]
     Dosage: 300 MG, UNK

REACTIONS (1)
  - Bronchitis [Unknown]
